FAERS Safety Report 13711920 (Version 2)
Quarter: 2017Q3

REPORT INFORMATION
  Report Type: Spontaneous
  Country: US (occurrence: US)
  Receive Date: 20170703
  Receipt Date: 20170920
  Transmission Date: 20171127
  Serious: No
  Sender: FDA-Public Use
  Company Number: US-JNJFOC-20170614936

PATIENT
  Age: 54 Year
  Sex: Female
  Weight: 70.31 kg

DRUGS (5)
  1. STELARA [Suspect]
     Active Substance: USTEKINUMAB
     Indication: PSORIATIC ARTHROPATHY
     Route: 058
     Dates: start: 20170605
  2. PREDNISONE. [Suspect]
     Active Substance: PREDNISONE
     Indication: INFLAMMATION
     Dosage: TAPERED DOSE
     Route: 048
     Dates: start: 20170606
  3. FOLIC ACID. [Concomitant]
     Active Substance: FOLIC ACID
     Dosage: 12 HOURS AFTER METHOTREXATE
     Route: 048
  4. PERCOCET [Concomitant]
     Active Substance: ACETAMINOPHEN\OXYCODONE HYDROCHLORIDE
     Indication: BACK PAIN
     Dosage: 10/325MG
     Route: 048
  5. METHOTREXATE. [Concomitant]
     Active Substance: METHOTREXATE
     Dosage: WITH USTEKINUMAB 9 PILLS
     Route: 048
     Dates: start: 20170606

REACTIONS (7)
  - Product use issue [Unknown]
  - Umbilical erythema [Not Recovered/Not Resolved]
  - Weight increased [Not Recovered/Not Resolved]
  - Rash erythematous [Recovered/Resolved]
  - Off label use [Unknown]
  - Drug ineffective [Not Recovered/Not Resolved]
  - Depression [Not Recovered/Not Resolved]

NARRATIVE: CASE EVENT DATE: 201706
